FAERS Safety Report 20378091 (Version 1)
Quarter: 2022Q1

REPORT INFORMATION
  Report Type: Spontaneous
  Country: US (occurrence: None)
  Receive Date: 20220125
  Receipt Date: 20220125
  Transmission Date: 20220424
  Serious: No
  Sender: FDA-Public Use
  Company Number: None

PATIENT
  Sex: Male

DRUGS (1)
  1. LUMAKRAS [Suspect]
     Active Substance: SOTORASIB
     Indication: Lung neoplasm malignant
     Dosage: 120MG 4 TABLETS ONCE DAILY ORAL?
     Route: 048
     Dates: start: 20211208

REACTIONS (2)
  - Drug ineffective [None]
  - Therapy cessation [None]
